FAERS Safety Report 7949933-X (Version None)
Quarter: 2011Q4

REPORT INFORMATION
  Report Type: 
  Country: None (occurrence: None)
  Receive Date: 20111130
  Receipt Date: 20111128
  Transmission Date: 20120403
  Serious: Yes (Other)
  Sender: FDA-Public Use
  Company Number: US-TEVA-311010USA

PATIENT
  Age: 61 Year
  Sex: Male

DRUGS (3)
  1. SIMVASTATIN [Interacting]
     Dosage: 80 MILLIGRAM;
  2. DILTIAZEM HCL [Interacting]
     Dosage: 240 MILLIGRAM;
  3. CITALOPRAM [Suspect]
     Dosage: 10 MILLIGRAM;

REACTIONS (2)
  - DRUG INTERACTION [None]
  - MYOCLONUS [None]
